FAERS Safety Report 6689390-7 (Version None)
Quarter: 2010Q2

REPORT INFORMATION
  Report Type: 
  Country: None (occurrence: None)
  Receive Date: 20100419
  Receipt Date: 20100419
  Transmission Date: 20101027
  Serious: Yes (Other)
  Sender: FDA-Public Use
  Company Number: None

PATIENT
  Age: 48 Year
  Sex: Male
  Weight: 86.637 kg

DRUGS (3)
  1. GENTAMICIN [Suspect]
     Indication: PROPHYLAXIS
     Dosage: 360MG EVERY 24 HOURS IV DRIP
     Route: 041
     Dates: start: 20100331, end: 20100406
  2. GENTAMICIN [Suspect]
     Indication: PSEUDOMONAS INFECTION
     Dosage: 360MG EVERY 24 HOURS IV DRIP
     Route: 041
     Dates: start: 20100331, end: 20100406
  3. VANCOMYCIN [Suspect]
     Indication: STAPHYLOCOCCAL INFECTION
     Dosage: VARIABLE VARIABLE IV DRIP
     Route: 041
     Dates: start: 20100329, end: 20100411

REACTIONS (5)
  - ATRIAL FIBRILLATION [None]
  - BLOOD CREATININE INCREASED [None]
  - BLOOD PRESSURE DECREASED [None]
  - DRUG LEVEL INCREASED [None]
  - RENAL IMPAIRMENT [None]
